FAERS Safety Report 4864386-6 (Version None)
Quarter: 2005Q4

REPORT INFORMATION
  Report Type: 
  Country: None (occurrence: None)
  Receive Date: 20051222
  Receipt Date: 20051209
  Transmission Date: 20060501
  Serious: Yes (Other)
  Sender: FDA-Public Use
  Company Number: CA-BRISTOL-MYERS SQUIBB COMPANY-13226436

PATIENT
  Age: 72 Year
  Sex: Female

DRUGS (7)
  1. TEQUIN [Suspect]
     Route: 048
  2. METFORMIN HCL [Interacting]
     Route: 048
  3. GLYBURIDE [Interacting]
     Route: 048
  4. ALTACE [Interacting]
     Route: 048
  5. LECTOPAM TAB [Concomitant]
     Route: 048
  6. SYNTHROID [Concomitant]
     Route: 048
  7. TEMAZEPAM [Concomitant]
     Route: 048

REACTIONS (2)
  - DRUG INTERACTION [None]
  - HYPOGLYCAEMIA [None]
